FAERS Safety Report 8862068 (Version 1)
Quarter: 2012Q4

REPORT INFORMATION
  Report Type: 
  Country: FR (occurrence: FR)
  Receive Date: 20121026
  Receipt Date: 20121026
  Transmission Date: 20130627
  Serious: Yes (Other)
  Sender: FDA-Public Use
  Company Number: FR-PFIZER INC-2012264606

PATIENT
  Age: 50 Year
  Sex: Female

DRUGS (4)
  1. ADVIL [Suspect]
     Dosage: UNK
     Route: 048
     Dates: start: 20120816, end: 20120826
  2. BIRODOGYL [Suspect]
     Dosage: UNK
     Dates: start: 20120816, end: 20120826
  3. ULTRALEVURE [Concomitant]
     Dosage: UNK
     Dates: start: 20120816
  4. VALSARTAN [Concomitant]
     Dosage: UNK

REACTIONS (2)
  - Rash [Recovered/Resolved]
  - Pruritus [Recovered/Resolved]
